FAERS Safety Report 7913022-0 (Version None)
Quarter: 2011Q4

REPORT INFORMATION
  Report Type: 
  Country: None (occurrence: None)
  Receive Date: 20111114
  Receipt Date: 20111110
  Transmission Date: 20120403
  Serious: Yes (Other)
  Sender: FDA-Public Use
  Company Number: CL-BAYER-2011-108925

PATIENT
  Sex: Female

DRUGS (1)
  1. YAZ [Suspect]
     Indication: ORAL CONTRACEPTION
     Dosage: UNK
     Route: 048
     Dates: start: 20110601

REACTIONS (3)
  - VAGINAL HAEMORRHAGE [None]
  - OVARIAN CYST [None]
  - MENSTRUATION DELAYED [None]
